FAERS Safety Report 26132692 (Version 1)
Quarter: 2025Q4

REPORT INFORMATION
  Report Type: Report from Study
  Country: US (occurrence: US)
  Receive Date: 20251208
  Receipt Date: 20251208
  Transmission Date: 20260118
  Serious: Yes (Hospitalization, Other)
  Sender: TAIHO ONCOLOGY INC
  Company Number: US-TAIHO-2024_025183

PATIENT
  Age: 73 Year
  Sex: Male
  Weight: 96 kg

DRUGS (18)
  1. INQOVI [Suspect]
     Active Substance: CEDAZURIDINE\DECITABINE
     Indication: Myelodysplastic syndrome
     Dosage: 1 DF (35 MG DECITABINE AND 100 MG CEDAZURIDINE), QD FOR 5 DAYS, THEN 23 DAYS OFF IN A 28-DAY CYCLE;
     Route: 048
     Dates: start: 20240608
  2. INQOVI [Suspect]
     Active Substance: CEDAZURIDINE\DECITABINE
     Dosage: 1 DF (35 MG DECITABINE AND 100 MG CEDAZURIDINE), ON DAYS 1-4; CYCLE 6
     Route: 048
     Dates: start: 202409
  3. INQOVI [Suspect]
     Active Substance: CEDAZURIDINE\DECITABINE
     Dosage: 1 DF (35 MG DECITABINE AND 100 MG CEDAZURIDINE), ON DAYS 1-3; CYCLE 7
     Route: 048
  4. CARVEDILOL [Concomitant]
     Active Substance: CARVEDILOL
     Indication: Product used for unknown indication
     Route: 065
  5. FUROSEMIDE [Concomitant]
     Active Substance: FUROSEMIDE
     Indication: Product used for unknown indication
     Dosage: UNK
     Route: 065
  6. OMEPRAZOLE [Concomitant]
     Active Substance: OMEPRAZOLE
     Indication: Product used for unknown indication
     Route: 065
  7. ROSUVASTATIN CALCIUM [Concomitant]
     Active Substance: ROSUVASTATIN CALCIUM
     Indication: Product used for unknown indication
     Route: 065
  8. SPIRONOLACTONE [Concomitant]
     Active Substance: SPIRONOLACTONE
     Indication: Product used for unknown indication
     Route: 048
  9. TADALAFIL [Concomitant]
     Active Substance: TADALAFIL
     Indication: Product used for unknown indication
     Route: 048
  10. ALLERGY RELIEF [Concomitant]
     Indication: Product used for unknown indication
  11. DOXYCYCLINE [Concomitant]
     Active Substance: DOXYCYCLINE
     Indication: Product used for unknown indication
  12. FERROUS SULFATE [Concomitant]
     Active Substance: FERROUS SULFATE
     Indication: Product used for unknown indication
  13. LACTULOSE [Concomitant]
     Active Substance: LACTULOSE
     Indication: Product used for unknown indication
  14. POTASSIUM CHLORIDE [Concomitant]
     Active Substance: POTASSIUM CHLORIDE
     Indication: Product used for unknown indication
     Dosage: CRYS
  15. VITAMIN D [Concomitant]
     Active Substance: VITAMIN D NOS
     Indication: Product used for unknown indication
  16. ZINC [Concomitant]
     Active Substance: ZINC
     Indication: Product used for unknown indication
     Route: 048
  17. MULTIVITAMIN ADULT [Concomitant]
     Indication: Product used for unknown indication
  18. SUPERIOR OMEGA 3 W/VITAMIN D [Concomitant]
     Indication: Product used for unknown indication
     Dosage: 1250-25 MG-MCG

REACTIONS (10)
  - Cataract [Unknown]
  - Pneumonia [Unknown]
  - Staphylococcal infection [Unknown]
  - Infection [Recovering/Resolving]
  - Nausea [Unknown]
  - White blood cell count decreased [Not Recovered/Not Resolved]
  - Pain [Recovered/Resolved]
  - Fatigue [Recovered/Resolved]
  - Platelet count decreased [Unknown]
  - Inappropriate schedule of product administration [Unknown]
